FAERS Safety Report 12813912 (Version 1)
Quarter: 2016Q4

REPORT INFORMATION
  Report Type: Report from Study
  Country: FR (occurrence: FR)
  Receive Date: 20161006
  Receipt Date: 20161006
  Transmission Date: 20170207
  Serious: Yes (Hospitalization)
  Sender: FDA-Public Use
  Company Number: FR-ROCHE-1838478

PATIENT
  Sex: Female

DRUGS (4)
  1. RITUXIMAB [Suspect]
     Active Substance: RITUXIMAB
     Indication: RHEUMATOID ARTHRITIS
     Dosage: 1 G (D15) ON 25-OCT-2005; : 1G (D1) ON 20-OCT-2006; 1 G (D15) ON 03-NOV-2006; 1G (D1) ON 26-MAY-2007
     Route: 041
     Dates: start: 20051011
  2. CORTANCYL [Concomitant]
     Active Substance: PREDNISONE
     Route: 065
  3. ARAVA [Concomitant]
     Active Substance: LEFLUNOMIDE
     Route: 065
  4. METHOTREXATE. [Concomitant]
     Active Substance: METHOTREXATE
     Route: 065

REACTIONS (7)
  - Pneumonia [Unknown]
  - Cardiac failure [Recovered/Resolved]
  - Kidney infection [Recovered/Resolved]
  - Radius fracture [Recovered/Resolved]
  - Aortic valve disease [Recovered/Resolved]
  - Cough [Recovered/Resolved]
  - Infarction [Unknown]

NARRATIVE: CASE EVENT DATE: 20080204
